FAERS Safety Report 12717260 (Version 1)
Quarter: 2020Q3

REPORT INFORMATION
  Report Type: Report from Study
  Country: KR (occurrence: KR)
  Receive Date: 20160906
  Receipt Date: 20160906
  Transmission Date: 20201104
  Serious: Yes (Hospitalization)
  Sender: FDA-Public Use
  Company Number: KR-JNJFOC-20160815066

PATIENT
  Age: 69 Year
  Sex: Male

DRUGS (12)
  1. BLINDED; IBRUTINI [Suspect]
     Active Substance: IBRUTINIB
     Indication: PANCREATIC CARCINOMA METASTATIC
     Dates: start: 20160816
  2. NAB?PACLITAXEL [Suspect]
     Active Substance: PACLITAXEL
     Indication: PANCREATIC CARCINOMA METASTATIC
     Route: 042
     Dates: start: 20160805, end: 20160808
  3. MYPOL [Concomitant]
     Indication: BACK PAIN
     Route: 048
     Dates: start: 2016
  4. BLINDED; IBRUTINI [Suspect]
     Active Substance: IBRUTINIB
     Indication: PANCREATIC CARCINOMA METASTATIC
     Dates: start: 20160805, end: 20160808
  5. ORODIPINE [Concomitant]
     Indication: HYPERTENSION
     Route: 048
     Dates: start: 2012
  6. PLACEBO [Suspect]
     Active Substance: UNSPECIFIED INGREDIENT
     Indication: PANCREATIC CARCINOMA METASTATIC
     Dates: start: 20160816
  7. GEMCITABINE. [Suspect]
     Active Substance: GEMCITABINE
     Indication: PANCREATIC CARCINOMA METASTATIC
     Route: 042
     Dates: start: 20160816
  8. LIPITOR [Concomitant]
     Active Substance: ATORVASTATIN CALCIUM
     Indication: HYPERLIPIDAEMIA
     Route: 048
     Dates: start: 2012
  9. NAB?PACLITAXEL [Suspect]
     Active Substance: PACLITAXEL
     Indication: PANCREATIC CARCINOMA METASTATIC
     Route: 042
     Dates: start: 20160816
  10. PLACEBO [Suspect]
     Active Substance: UNSPECIFIED INGREDIENT
     Indication: PANCREATIC CARCINOMA METASTATIC
     Dates: start: 20160805, end: 20160808
  11. GEMCITABINE. [Suspect]
     Active Substance: GEMCITABINE
     Indication: PANCREATIC CARCINOMA METASTATIC
     Route: 042
     Dates: start: 20160805, end: 20160808
  12. ASPIRIN. [Concomitant]
     Active Substance: ASPIRIN
     Indication: ACUTE MYOCARDIAL INFARCTION
     Route: 048
     Dates: start: 2014

REACTIONS (1)
  - Haematochezia [Recovered/Resolved]

NARRATIVE: CASE EVENT DATE: 20160807
